FAERS Safety Report 21545195 (Version 2)
Quarter: 2025Q2

REPORT INFORMATION
  Report Type: Spontaneous
  Country: GB (occurrence: GB)
  Receive Date: 20221103
  Receipt Date: 20250531
  Transmission Date: 20250716
  Serious: Yes (Hospitalization, Other)
  Sender: AUROBINDO
  Company Number: GB-MLMSERVICE-20221014-3862618-1

PATIENT
  Sex: Male

DRUGS (10)
  1. FLECAINIDE [Suspect]
     Active Substance: FLECAINIDE
     Indication: Supraventricular tachycardia
     Dosage: 1 MILLIGRAM/KILOGRAM, TWO TIMES A DAY
     Route: 065
  2. FLECAINIDE [Suspect]
     Active Substance: FLECAINIDE
     Dosage: 2 MILLIGRAM/KILOGRAM, TWO TIMES A DAY
     Route: 065
  3. AMIODARONE [Concomitant]
     Active Substance: AMIODARONE
     Indication: Bradycardia foetal
     Route: 065
  4. AMIODARONE [Concomitant]
     Active Substance: AMIODARONE
     Indication: Tachycardia foetal
  5. ADENOSINE [Concomitant]
     Active Substance: ADENOSINE
     Indication: Tachycardia foetal
     Dosage: FIVE DOSES
     Route: 065
  6. ADENOSINE [Concomitant]
     Active Substance: ADENOSINE
     Indication: Bradycardia foetal
     Dosage: THREE DOSES
     Route: 065
  7. ADENOSINE [Concomitant]
     Active Substance: ADENOSINE
     Dosage: 13 DOSES
     Route: 065
  8. PROPRANOLOL [Concomitant]
     Active Substance: PROPRANOLOL HYDROCHLORIDE
     Indication: Bradycardia foetal
     Dosage: 1 MILLIGRAM, 3 TIMES A DAY
     Route: 065
  9. PROPRANOLOL [Concomitant]
     Active Substance: PROPRANOLOL HYDROCHLORIDE
     Indication: Tachycardia foetal
  10. DIGOXIN [Concomitant]
     Active Substance: DIGOXIN
     Dosage: 5 MICROGRAM/KILOGRAM, TWO TIMES A DAY
     Route: 065

REACTIONS (2)
  - Condition aggravated [Recovering/Resolving]
  - Supraventricular tachycardia [Recovering/Resolving]
